FAERS Safety Report 9440700 (Version 1)
Quarter: 2013Q3

REPORT INFORMATION
  Report Type: Report from Study
  Country: IT (occurrence: IT)
  Receive Date: 20130805
  Receipt Date: 20130805
  Transmission Date: 20140515
  Serious: Yes (Hospitalization)
  Sender: FDA-Public Use
  Company Number: IT-ROCHE-1255494

PATIENT
  Age: 59 Year
  Sex: Female
  Weight: 63 kg

DRUGS (6)
  1. BEVACIZUMAB [Suspect]
     Indication: COLON CANCER
     Dosage: DATE OF LAST DOSE PRIOR TO SAE: 05/JUN/2013
     Route: 042
     Dates: start: 20130207, end: 20130620
  2. BEVACIZUMAB [Suspect]
     Indication: RECTAL CANCER
  3. OXALIPLATIN [Suspect]
     Indication: COLON CANCER
     Dosage: DATE OF LAST DOSE PRIOR TO SAE: 18/JUN/2013
     Route: 042
     Dates: start: 20130208, end: 20130620
  4. OXALIPLATIN [Suspect]
     Indication: RECTAL CANCER
  5. FLUOROURACIL [Suspect]
     Indication: COLON CANCER
     Dosage: DATE OF LAST DOSE PRIOR TO SAE: 18/JUN/2013
     Route: 042
     Dates: start: 20130208, end: 20130620
  6. FLUOROURACIL [Suspect]
     Indication: RECTAL CANCER
     Dosage: DATE OF LAST DOSE PRIOR TO SAE: 18/JUN/2013
     Route: 042
     Dates: start: 20130208, end: 20130620

REACTIONS (6)
  - Erythema [Recovered/Resolved]
  - Nausea [Recovered/Resolved]
  - Vomiting [Recovered/Resolved]
  - Dyspnoea [Recovered/Resolved]
  - Face oedema [Recovered/Resolved]
  - Localised oedema [Recovered/Resolved]
